FAERS Safety Report 14964130 (Version 1)
Quarter: 2018Q2

REPORT INFORMATION
  Report Type: Spontaneous
  Country: US (occurrence: US)
  Receive Date: 20180601
  Receipt Date: 20180601
  Transmission Date: 20180711
  Serious: No
  Sender: FDA-Public Use
  Company Number: US-BEH-2018091179

PATIENT
  Age: 77 Year
  Sex: Female

DRUGS (1)
  1. HIZENTRA [Suspect]
     Active Substance: HUMAN IMMUNOGLOBULIN G
     Indication: IMMUNODEFICIENCY COMMON VARIABLE
     Dosage: 16 G (80ML), QOW
     Route: 058
     Dates: start: 20130508

REACTIONS (1)
  - Penile blister [Recovered/Resolved]

NARRATIVE: CASE EVENT DATE: 20180520
